FAERS Safety Report 5011661-0 (Version None)
Quarter: 2006Q2

REPORT INFORMATION
  Report Type: 
  Country: None (occurrence: None)
  Receive Date: 20060526
  Receipt Date: 20060518
  Transmission Date: 20061013
  Serious: Yes (Other)
  Sender: FDA-Public Use
  Company Number: US-JNJFOC-20060504175

PATIENT
  Sex: Male

DRUGS (27)
  1. REMICADE [Suspect]
     Indication: RHEUMATOID ARTHRITIS
     Route: 042
  2. ALLEGRA [Concomitant]
  3. DIOVAN [Concomitant]
  4. XALATAN [Concomitant]
  5. FOLIC ACID [Concomitant]
  6. LOPRESSOR [Concomitant]
  7. METHOTREXATE [Concomitant]
  8. LOTEMAX [Concomitant]
  9. OSCAL [Concomitant]
  10. PLAVIX [Concomitant]
  11. MULTI-VITAMIN [Concomitant]
  12. MULTI-VITAMIN [Concomitant]
  13. MULTI-VITAMIN [Concomitant]
  14. MULTI-VITAMIN [Concomitant]
  15. MULTI-VITAMIN [Concomitant]
  16. MULTI-VITAMIN [Concomitant]
  17. MULTI-VITAMIN [Concomitant]
  18. MULTI-VITAMIN [Concomitant]
  19. MOBIC [Concomitant]
  20. LIPITOR [Concomitant]
  21. GLUCOSAMINE/CHONDROITIN [Concomitant]
  22. GLUCOSAMINE/CHONDROITIN [Concomitant]
  23. GLUCOSAMINE/CHONDROITIN [Concomitant]
  24. GLUCOSAMINE/CHONDROITIN [Concomitant]
  25. FLONASE [Concomitant]
  26. NITROGLYCERIN [Concomitant]
  27. TYLENOL (GELTAB) [Concomitant]

REACTIONS (1)
  - BASAL CELL CARCINOMA [None]
